FAERS Safety Report 25413615 (Version 1)
Quarter: 2025Q2

REPORT INFORMATION
  Report Type: Spontaneous
  Country: US (occurrence: None)
  Receive Date: 20250607
  Receipt Date: 20250607
  Transmission Date: 20250716
  Serious: Yes (Disabling)
  Sender: FDA-CTU
  Company Number: None

PATIENT
  Age: 33 Year
  Sex: Female
  Weight: 56 kg

DRUGS (1)
  1. INTUNIV [Suspect]
     Active Substance: GUANFACINE HYDROCHLORIDE
     Indication: Attention deficit hyperactivity disorder
     Dosage: FREQUENCY : DAILY;?
     Route: 048
     Dates: start: 20231124, end: 20240629

REACTIONS (8)
  - Brain injury [None]
  - Withdrawal syndrome [None]
  - Fatigue [None]
  - Depressed mood [None]
  - Headache [None]
  - Brain fog [None]
  - Impaired work ability [None]
  - Exercise tolerance decreased [None]

NARRATIVE: CASE EVENT DATE: 20240629
